FAERS Safety Report 9670314 (Version 2)
Quarter: 2013Q4

REPORT INFORMATION
  Report Type: Spontaneous
  Country: US (occurrence: US)
  Receive Date: 20131105
  Receipt Date: 20131118
  Transmission Date: 20140711
  Serious: No
  Sender: FDA-Public Use
  Company Number: US-BAXTER-2013BAX043457

PATIENT
  Age: 74 Year
  Sex: Female
  Weight: 65.83 kg

DRUGS (3)
  1. 0.9% SODIUM CHLORIDE INJECTION [Suspect]
     Indication: CATHETER MANAGEMENT
     Dosage: 8-10 ML FLUSH
     Route: 042
     Dates: start: 20131022, end: 20131022
  2. F-18 FDG (FLUDEOXYGLUCOSE) [Suspect]
     Indication: POSITRON EMISSION TOMOGRAM
     Route: 042
     Dates: start: 20131022, end: 20131022
  3. F-18 FDG (FLUDEOXYGLUCOSE) [Suspect]
     Indication: SCAN

REACTIONS (4)
  - Feeling hot [Recovering/Resolving]
  - Hyperhidrosis [Recovering/Resolving]
  - Blood pressure abnormal [Recovered/Resolved]
  - Cold sweat [Recovering/Resolving]
